FAERS Safety Report 11914687 (Version 1)
Quarter: 2016Q1

REPORT INFORMATION
  Report Type: Spontaneous
  Country: IT (occurrence: IT)
  Receive Date: 20160113
  Receipt Date: 20160113
  Transmission Date: 20160526
  Serious: Yes (Other)
  Sender: FDA-Public Use
  Company Number: PHHY2016IT002828

PATIENT
  Age: 17 Year
  Sex: Female

DRUGS (3)
  1. NORITREN [Suspect]
     Active Substance: NORTRIPTYLINE HYDROCHLORIDE
     Indication: PRODUCT USED FOR UNKNOWN INDICATION
     Dosage: 3 DF, TOTAL
     Route: 048
     Dates: start: 20151215, end: 20151215
  2. TEGRETOL [Suspect]
     Active Substance: CARBAMAZEPINE
     Indication: PRODUCT USED FOR UNKNOWN INDICATION
     Dosage: 8 DF, TOTAL
     Route: 048
     Dates: start: 20151215, end: 20151215
  3. HALDOL [Suspect]
     Active Substance: HALOPERIDOL
     Indication: PRODUCT USED FOR UNKNOWN INDICATION
     Dosage: TOTAL
     Route: 048
     Dates: start: 20151215, end: 20151215

REACTIONS (3)
  - Sopor [Unknown]
  - Intentional self-injury [Unknown]
  - Overdose [Unknown]

NARRATIVE: CASE EVENT DATE: 20151215
